FAERS Safety Report 9335566 (Version 2)
Quarter: 2013Q2

REPORT INFORMATION
  Report Type: Spontaneous
  Country: DE (occurrence: DE)
  Receive Date: 20130605
  Receipt Date: 20130626
  Transmission Date: 20140414
  Serious: Yes (Hospitalization)
  Sender: FDA-Public Use
  Company Number: DE-GLAXOSMITHKLINE-D0080021A

PATIENT
  Sex: Female

DRUGS (8)
  1. SULTANOL [Suspect]
     Indication: ASTHMA
     Route: 055
  2. ATROVENT [Suspect]
     Indication: ASTHMA
     Route: 065
  3. BERODUAL [Concomitant]
     Route: 065
  4. INUVAIR [Concomitant]
     Route: 065
  5. SINGULAIR [Concomitant]
     Dosage: 10MG PER DAY
     Route: 065
  6. SPIRIVA [Concomitant]
     Dosage: 18MG PER DAY
     Route: 065
  7. BRONCHOPARAT [Concomitant]
     Dosage: 200MG TWICE PER DAY
     Route: 065
  8. LEVOCETIRIZINE [Concomitant]
     Dosage: 5MG PER DAY
     Route: 065

REACTIONS (2)
  - Peak expiratory flow rate decreased [Unknown]
  - Drug ineffective [Unknown]
